FAERS Safety Report 7221329-8 (Version None)
Quarter: 2011Q1

REPORT INFORMATION
  Report Type: 
  Country: None (occurrence: None)
  Receive Date: 20110112
  Receipt Date: 20101228
  Transmission Date: 20110831
  Serious: Yes (Other)
  Sender: FDA-Public Use
  Company Number: FR-CELGENEUS-056-21880-10123136

PATIENT
  Age: 74 Year
  Sex: Male

DRUGS (3)
  1. REVLIMID [Suspect]
     Route: 048
  2. DEFERASIROX [Concomitant]
     Indication: CHELATION THERAPY
     Route: 065
  3. REVLIMID [Suspect]
     Route: 048

REACTIONS (4)
  - CLONAL EVOLUTION [None]
  - LEUKAEMIA [None]
  - MYELODYSPLASTIC SYNDROME TRANSFORMATION [None]
  - ADVERSE REACTION [None]
